FAERS Safety Report 7334881-9 (Version None)
Quarter: 2011Q1

REPORT INFORMATION
  Report Type: 
  Country: None (occurrence: None)
  Receive Date: 20110307
  Receipt Date: 20110222
  Transmission Date: 20110831
  Serious: Yes (Other)
  Sender: FDA-Public Use
  Company Number: US-CELGENEUS-163-21880-11022891

PATIENT
  Age: 78 Year
  Sex: Female
  Weight: 54.48 kg

DRUGS (1)
  1. REVLIMID [Suspect]
     Dosage: 10 MILLIGRAM
     Route: 048

REACTIONS (1)
  - ADVERSE DRUG REACTION [None]
